FAERS Safety Report 4708621-3 (Version None)
Quarter: 2005Q3

REPORT INFORMATION
  Report Type: 
  Country: None (occurrence: None)
  Receive Date: 20050707
  Receipt Date: 20050628
  Transmission Date: 20060218
  Serious: Yes (Hospitalization)
  Sender: FDA-Public Use
  Company Number: 200512160FR

PATIENT
  Age: 14 Year
  Sex: Female
  Weight: 30 kg

DRUGS (5)
  1. ARTANE [Suspect]
     Route: 048
     Dates: start: 20050607
  2. RIFADIN [Suspect]
     Route: 048
     Dates: start: 20050531
  3. OFLOCET [Suspect]
     Route: 048
     Dates: start: 20050531
  4. DEPAKENE [Suspect]
     Route: 048
     Dates: start: 20000101
  5. LIORESAL [Suspect]
     Route: 037
     Dates: start: 20020903

REACTIONS (5)
  - CONVULSION [None]
  - DRUG EFFECT DECREASED [None]
  - DRUG LEVEL BELOW THERAPEUTIC [None]
  - DRUG LEVEL DECREASED [None]
  - POSTICTAL STATE [None]
